FAERS Safety Report 10609998 (Version 2)
Quarter: 2014Q4

REPORT INFORMATION
  Report Type: Spontaneous
  Country: NZ (occurrence: None)
  Receive Date: 20141124
  Receipt Date: 20141219
  Transmission Date: 20150529
  Serious: Yes (Other)
  Sender: FDA-Public Use
  Company Number: 2014NZ009857

PATIENT
  Age: 69 Year
  Sex: Male

DRUGS (1)
  1. ELIGARD [Suspect]
     Active Substance: LEUPROLIDE ACETATE
     Indication: PROSTATE CANCER
     Route: 058
     Dates: start: 20141010

REACTIONS (4)
  - Injection site paraesthesia [None]
  - Back pain [None]
  - Colon cancer recurrent [None]
  - Malignant neoplasm progression [None]

NARRATIVE: CASE EVENT DATE: 20141011
